FAERS Safety Report 4316028-6 (Version None)
Quarter: 2004Q1

REPORT INFORMATION
  Report Type: 
  Country: None (occurrence: None)
  Receive Date: 20040311
  Receipt Date: 20040225
  Transmission Date: 20041129
  Serious: Yes (Hospitalization)
  Sender: FDA-Public Use
  Company Number: 2004201152FR

PATIENT
  Age: 51 Year
  Sex: Male

DRUGS (2)
  1. MEDROL [Suspect]
     Indication: NERVOUS SYSTEM DISORDER
     Dosage: 500 MG, QD, ORAL
     Route: 048
  2. ATORVASTATIN CALCIUM [Suspect]
     Indication: HYPERCHOLESTEROLAEMIA
     Dosage: 10 MG, QD, ORAL
     Route: 048
     Dates: start: 20030101

REACTIONS (1)
  - OEDEMATOUS PANCREATITIS [None]
